FAERS Safety Report 8472962-7 (Version None)
Quarter: 2012Q2

REPORT INFORMATION
  Report Type: 
  Country: None (occurrence: None)
  Receive Date: 20120627
  Receipt Date: 20120625
  Transmission Date: 20120825
  Serious: Yes (Death)
  Sender: FDA-Public Use
  Company Number: US-CELGENEUS-163-21880-12063495

PATIENT
  Sex: Female

DRUGS (10)
  1. ALLEGRA [Concomitant]
     Dosage: 180 MILLIGRAM
     Route: 048
  2. MULTIVITAMINS FOR HER [Concomitant]
     Route: 048
  3. VITAMIN B COMPLEX CAP [Concomitant]
     Route: 048
  4. REVLIMID [Suspect]
     Dosage: 10 MILLIGRAM
     Route: 048
     Dates: start: 20110701, end: 20110101
  5. REVLIMID [Suspect]
     Indication: MULTIPLE MYELOMA
     Dosage: 10 MILLIGRAM
     Route: 048
     Dates: start: 20101005, end: 20110101
  6. REVLIMID [Suspect]
     Dosage: 5 MILLIGRAM
     Route: 048
     Dates: start: 20111001, end: 20120101
  7. ACYCLOVIR [Concomitant]
     Dosage: 200 MILLIGRAM
     Route: 048
  8. CALCIUM +D [Concomitant]
     Route: 048
  9. AMITRIPTYLINE HCL [Concomitant]
     Dosage: 10 MILLIGRAM
     Route: 048
  10. PRILOSEC [Concomitant]
     Dosage: 10 MILLIGRAM
     Route: 048

REACTIONS (1)
  - DEATH [None]
